FAERS Safety Report 11029739 (Version 1)
Quarter: 2015Q2

REPORT INFORMATION
  Report Type: Spontaneous
  Country: US (occurrence: None)
  Receive Date: 20150413
  Receipt Date: 20150413
  Transmission Date: 20150821
  Serious: Yes (Other)
  Sender: FDA-Public Use
  Company Number: None

PATIENT
  Age: 64 Year
  Sex: Female
  Weight: 92.53 kg

DRUGS (6)
  1. CELEXICOB [Concomitant]
  2. CELECOXIB. [Suspect]
     Active Substance: CELECOXIB
     Indication: COMPLEX REGIONAL PAIN SYNDROME
     Dosage: ONE CAPSULE ONCE DAILY TAKEN BY MOUTH
     Route: 048
     Dates: start: 20150225, end: 20150411
  3. LYRICA [Concomitant]
     Active Substance: PREGABALIN
  4. OMNIPRAZOLE [Concomitant]
  5. FLEXARIL [Concomitant]
  6. OXYCODONE WITH TYLENOL INFERENTIAL STIMULATOR [Concomitant]

REACTIONS (4)
  - Asthenia [None]
  - Pain in extremity [None]
  - Drug ineffective [None]
  - Product substitution issue [None]
